FAERS Safety Report 17714614 (Version 1)
Quarter: 2020Q2

REPORT INFORMATION
  Report Type: Spontaneous
  Country: US (occurrence: US)
  Receive Date: 20200427
  Receipt Date: 20200427
  Transmission Date: 20200714
  Serious: No
  Sender: FDA-Public Use
  Company Number: US-JNJFOC-20200426903

PATIENT

DRUGS (1)
  1. DARZALEX [Suspect]
     Active Substance: DARATUMUMAB
     Indication: PLASMA CELL MYELOMA
     Dosage: AS PER SOURCE PATIENT WAS IN DARATUMUMAB FOR A YEAR, AND SYMPTOMS FOR 3 MONTHS.
     Route: 065

REACTIONS (3)
  - Oedema [Unknown]
  - Dysuria [Unknown]
  - Burning sensation [Unknown]
